FAERS Safety Report 4403578-7 (Version None)
Quarter: 2004Q3

REPORT INFORMATION
  Report Type: 
  Country: None (occurrence: None)
  Receive Date: 20040721
  Receipt Date: 20040621
  Transmission Date: 20050211
  Serious: Yes (Other)
  Sender: FDA-Public Use
  Company Number: GB-GLAXOSMITHKLINE-B0336338A

PATIENT
  Age: 40 Year
  Sex: Male
  Weight: 117.6 kg

DRUGS (2)
  1. ZYBAN [Suspect]
     Indication: SMOKING CESSATION THERAPY
     Dates: start: 20010202, end: 20010301
  2. NO CONCURRENT MEDICATION [Concomitant]

REACTIONS (5)
  - ABNORMAL BEHAVIOUR [None]
  - AGGRESSION [None]
  - ANXIETY [None]
  - DEPRESSION [None]
  - STRESS SYMPTOMS [None]
